FAERS Safety Report 7087156-X (Version None)
Quarter: 2010Q4

REPORT INFORMATION
  Report Type: 
  Country: None (occurrence: None)
  Receive Date: 20101106
  Receipt Date: 20101101
  Transmission Date: 20110411
  Serious: No
  Sender: FDA-Public Use
  Company Number: US-WYE-H18453110

PATIENT
  Sex: Female

DRUGS (1)
  1. EFFEXOR XR [Suspect]
     Dosage: TAKING 1 EFFEXOR XR A DAY, DOSAGE NOT SPECIFIED

REACTIONS (1)
  - INTENTIONAL DRUG MISUSE [None]
